FAERS Safety Report 8578171-5 (Version None)
Quarter: 2012Q3

REPORT INFORMATION
  Report Type: 
  Country: None (occurrence: None)
  Receive Date: 20120808
  Receipt Date: 20120803
  Transmission Date: 20120928
  Serious: No
  Sender: FDA-Public Use
  Company Number: US-PFIZER INC-2012189143

PATIENT
  Age: 54 Year
  Sex: Female

DRUGS (3)
  1. INLYTA [Suspect]
     Indication: RENAL CANCER
     Dosage: 1 TABLET, TWO TIMES A DAY
     Route: 048
  2. INLYTA [Suspect]
     Indication: MALIGNANT URINARY TRACT NEOPLASM
  3. INLYTA [Suspect]
     Indication: BRONCHIAL CARCINOMA

REACTIONS (2)
  - RENAL CANCER [None]
  - DISEASE PROGRESSION [None]
